FAERS Safety Report 5161948-6 (Version None)
Quarter: 2006Q4

REPORT INFORMATION
  Report Type: 
  Country: None (occurrence: None)
  Receive Date: 20061130
  Receipt Date: 20060327
  Transmission Date: 20070319
  Serious: Yes (Other)
  Sender: FDA-Public Use
  Company Number: 2006UW18957

PATIENT
  Age: 71 Year
  Sex: Male

DRUGS (12)
  1. PRILOSEC [Suspect]
     Indication: GASTROOESOPHAGEAL REFLUX DISEASE
     Route: 048
     Dates: end: 20050302
  2. PRILOSEC [Suspect]
     Indication: ULCER
     Route: 048
     Dates: end: 20050302
  3. NAMENDA [Suspect]
     Indication: DEMENTIA ALZHEIMER'S TYPE
     Route: 048
     Dates: start: 20040101, end: 20040101
  4. NAMENDA [Suspect]
     Route: 048
     Dates: start: 20040101, end: 20040101
  5. NAMENDA [Suspect]
     Route: 048
     Dates: start: 20040101, end: 20040101
  6. NAMENDA [Suspect]
     Route: 048
     Dates: start: 20040101, end: 20040301
  7. NAMENDA [Suspect]
     Route: 048
     Dates: start: 20040301, end: 20050101
  8. NAMENDA [Suspect]
     Route: 048
     Dates: start: 20050101, end: 20050101
  9. NAMENDA [Suspect]
     Route: 048
     Dates: start: 20050101, end: 20050302
  10. NAMENDA [Suspect]
     Route: 048
     Dates: start: 20050304
  11. HYTRIN [Concomitant]
  12. XANAX [Concomitant]

REACTIONS (3)
  - ANGER [None]
  - BRONCHOPNEUMONIA [None]
  - DYSPNOEA EXERTIONAL [None]
